FAERS Safety Report 6844995-5 (Version None)
Quarter: 2010Q3

REPORT INFORMATION
  Report Type: 
  Country: None (occurrence: None)
  Receive Date: 20100713
  Receipt Date: 20100630
  Transmission Date: 20110219
  Serious: Yes (Hospitalization, Other)
  Sender: FDA-Public Use
  Company Number: 2010SCPR001180

PATIENT
  Age: 48 Year
  Sex: Male

DRUGS (5)
  1. DIAZEPAM [Suspect]
     Indication: PRODUCT USED FOR UNKNOWN INDICATION
     Dosage: ORAL
     Route: 048
  2. NEBIVOLOL (NEBIVOLOL) UNKNOWN [Suspect]
     Indication: PRODUCT USED FOR UNKNOWN INDICATION
     Dosage: ORAL
     Route: 048
  3. BACLOFEN [Suspect]
     Indication: PRODUCT USED FOR UNKNOWN INDICATION
  4. ETHANOL (ETHANOL) UNKNOWN [Suspect]
     Indication: PRODUCT USED FOR UNKNOWN INDICATION
     Dosage: ORAL
     Route: 048
  5. COCAINE (COCAINE) UNKNOWN [Suspect]
     Indication: PRODUCT USED FOR UNKNOWN INDICATION
     Dosage: ORAL
     Route: 048

REACTIONS (9)
  - BRADYCARDIA [None]
  - CARDIAC ARREST [None]
  - COMA SCALE ABNORMAL [None]
  - HYPERTENSION [None]
  - HYPOTENSION [None]
  - HYPOVENTILATION [None]
  - MULTIPLE DRUG OVERDOSE INTENTIONAL [None]
  - PUPILLARY LIGHT REFLEX TESTS ABNORMAL [None]
  - TACHYCARDIA [None]
